FAERS Safety Report 7634252-1 (Version None)
Quarter: 2011Q3

REPORT INFORMATION
  Report Type: 
  Country: None (occurrence: None)
  Receive Date: 20110725
  Receipt Date: 20110715
  Transmission Date: 20111222
  Serious: Yes (Hospitalization, Other)
  Sender: FDA-Public Use
  Company Number: US-ABBOTT-11P-163-0734764-00

PATIENT
  Sex: Male
  Weight: 90.8 kg

DRUGS (15)
  1. DEXILANT [Concomitant]
     Indication: GASTROOESOPHAGEAL REFLUX DISEASE
  2. DICYCLOMINE [Concomitant]
     Indication: PROPHYLAXIS
  3. DICYCLOMINE [Concomitant]
     Indication: CROHN'S DISEASE
  4. TRAMADOL HCL [Concomitant]
     Indication: PAIN
  5. ASACOL [Concomitant]
     Indication: CROHN'S DISEASE
  6. HUMIRA [Suspect]
     Dates: start: 20110623
  7. ENTOCORT EC [Concomitant]
     Indication: CROHN'S DISEASE
  8. POTASSIUM [Concomitant]
     Indication: MINERAL SUPPLEMENTATION
  9. HUMIRA [Suspect]
     Indication: CROHN'S DISEASE
     Dates: start: 20080101, end: 20110601
  10. PREDNISONE [Suspect]
  11. IMODIUM [Concomitant]
     Indication: CROHN'S DISEASE
  12. PREDNISONE [Suspect]
     Indication: CROHN'S DISEASE
     Dates: start: 19990101
  13. PREDNISONE [Suspect]
     Dosage: TITRATING DOSE
     Dates: end: 20110601
  14. DICYCLOMINE [Concomitant]
     Indication: ABDOMINAL PAIN UPPER
  15. LORTAB [Concomitant]
     Indication: PAIN

REACTIONS (10)
  - COLITIS [None]
  - CROHN'S DISEASE [None]
  - BLOOD POTASSIUM DECREASED [None]
  - ERUCTATION [None]
  - DYSGEUSIA [None]
  - BONE EROSION [None]
  - PERNICIOUS ANAEMIA [None]
  - ABDOMINAL PAIN LOWER [None]
  - VOMITING [None]
  - QUADRIPLEGIA [None]
